FAERS Safety Report 24969438 (Version 3)
Quarter: 2025Q3

REPORT INFORMATION
  Report Type: Spontaneous
  Country: EU (occurrence: EU)
  Receive Date: 20250214
  Receipt Date: 20250721
  Transmission Date: 20251021
  Serious: Yes (Death, Life-Threatening, Hospitalization, Disabling)
  Sender: TEVA
  Company Number: None

PATIENT
  Age: 68 Year
  Sex: Female
  Weight: 53 kg

DRUGS (7)
  1. DOCETAXEL [Suspect]
     Active Substance: DOCETAXEL
     Indication: HER2 positive breast cancer
     Dosage: 80MG/M2 EVERY 3 WEEKS TOGETHER WITH PHESGO DOSE: SECOND DOSE
     Route: 042
     Dates: start: 20240425, end: 20240515
  2. EPIRUBICIN [Suspect]
     Active Substance: EPIRUBICIN
     Indication: HER2 positive breast cancer
     Dosage: 75MG/M2 EVERY 3 WEEKS DOSE: FIRST DOSE
     Route: 042
     Dates: start: 20240626, end: 20240626
  3. PHESGO [Suspect]
     Active Substance: HYALURONIDASE-ZZXF\PERTUZUMAB\TRASTUZUMAB
     Indication: HER2 positive breast cancer
     Dosage: LATER 600/600 EVERY 3 WEEKS, TOGETHER WITH DOCETAXEL AND LATER NABPACLITAXEL DOSE: THIRD DOSE
     Route: 058
  4. PHESGO [Suspect]
     Active Substance: HYALURONIDASE-ZZXF\PERTUZUMAB\TRASTUZUMAB
     Indication: HER2 positive breast cancer
     Route: 058
     Dates: start: 20240425, end: 20240605
  5. CYCLOPHOSPHAMIDE [Suspect]
     Active Substance: CYCLOPHOSPHAMIDE
     Indication: HER2 positive breast cancer
     Dosage: 900MG/M2 EVERY 3 WEEKS DOSE: FIRST DOSE
     Route: 042
     Dates: start: 20240626, end: 20240626
  6. PEGFILGRASTIM [Concomitant]
     Active Substance: PEGFILGRASTIM
     Indication: Product used for unknown indication
     Route: 065
     Dates: end: 20240626
  7. PACLITAXEL [Suspect]
     Active Substance: PACLITAXEL
     Indication: HER2 positive breast cancer
     Dosage: 100MG/M2 WEEKLY AT C3 OF NEOADJUVANT TREATMENT DOSE: FIRST DOSE
     Route: 042
     Dates: start: 20240605, end: 20240612

REACTIONS (4)
  - Respiratory failure [Fatal]
  - Pneumonitis [Fatal]
  - Acute respiratory distress syndrome [Fatal]
  - Diffuse alveolar damage [Fatal]

NARRATIVE: CASE EVENT DATE: 20240710
